FAERS Safety Report 12479728 (Version 3)
Quarter: 2016Q3

REPORT INFORMATION
  Report Type: Spontaneous
  Country: US (occurrence: US)
  Receive Date: 20160620
  Receipt Date: 20160902
  Transmission Date: 20161109
  Serious: No
  Sender: FDA-Public Use
  Company Number: US-PFIZER INC-2016302525

PATIENT
  Age: 72 Year
  Sex: Female

DRUGS (3)
  1. IBRANCE [Suspect]
     Active Substance: PALBOCICLIB
     Dosage: 125 MG, CYCLIC (DAY 1 TO DAY 21 OF EVERY 28 DAYS)
     Route: 048
     Dates: start: 20160613
  2. IBRANCE [Suspect]
     Active Substance: PALBOCICLIB
     Dosage: 125 MG, CYCLIC (DAY 1 TO DAY 21 OF EVERY 28 DAYS)
     Route: 048
     Dates: start: 20160828
  3. IBRANCE [Suspect]
     Active Substance: PALBOCICLIB
     Indication: BREAST CANCER
     Dosage: 125 MG, CYCLIC (DAY 1 TO DAY 21 OF EVERY 28 DAYS)
     Route: 048
     Dates: start: 20160516

REACTIONS (3)
  - Full blood count decreased [Unknown]
  - Breast cancer [Unknown]
  - Disease progression [Unknown]
